FAERS Safety Report 7409291-6 (Version None)
Quarter: 2011Q2

REPORT INFORMATION
  Report Type: 
  Country: None (occurrence: None)
  Receive Date: 20110412
  Receipt Date: 20110404
  Transmission Date: 20111010
  Serious: Yes (Hospitalization)
  Sender: FDA-Public Use
  Company Number: B0705947A

PATIENT
  Age: 24 Year
  Sex: Female

DRUGS (3)
  1. SEROQUEL [Concomitant]
     Dosage: 525MG PER DAY
     Route: 048
  2. DEPAKENE [Concomitant]
     Dosage: 3400MG PER DAY
     Route: 048
  3. LAMICTAL [Suspect]
     Dosage: 3500MG PER DAY
     Route: 048

REACTIONS (2)
  - MULTIPLE DRUG OVERDOSE [None]
  - ALTERED STATE OF CONSCIOUSNESS [None]
